FAERS Safety Report 16139845 (Version 1)
Quarter: 2019Q2

REPORT INFORMATION
  Report Type: Spontaneous
  Country: US (occurrence: US)
  Receive Date: 20190329
  Receipt Date: 20190329
  Transmission Date: 20190711
  Serious: Yes (Other)
  Sender: FDA-Public Use
  Company Number: None

PATIENT
  Age: 49 Year
  Sex: Female
  Weight: 63 kg

DRUGS (2)
  1. FOLIC ACID. [Concomitant]
     Active Substance: FOLIC ACID
  2. METHOTREXATE 2.5MG [Suspect]
     Active Substance: METHOTREXATE
     Indication: RASH
     Dosage: ?          QUANTITY:8 TABLET(S);OTHER FREQUENCY:WEEKLY;?
     Route: 048
     Dates: start: 20150821, end: 20190303

REACTIONS (1)
  - Tinnitus [None]

NARRATIVE: CASE EVENT DATE: 20190224
